FAERS Safety Report 8381442-9 (Version None)
Quarter: 2012Q2

REPORT INFORMATION
  Report Type: 
  Country: None (occurrence: None)
  Receive Date: 20120523
  Receipt Date: 20120514
  Transmission Date: 20120825
  Serious: Yes (Hospitalization)
  Sender: FDA-Public Use
  Company Number: US-ABBOTT-12P-163-0935581-00

PATIENT
  Age: 58 Year
  Sex: Female

DRUGS (11)
  1. CHOLESTYRAMINE [Concomitant]
     Indication: PRODUCT USED FOR UNKNOWN INDICATION
  2. EYE DROPS [Concomitant]
     Indication: EYE DISORDER
     Dosage: DAILY
  3. HUMIRA [Suspect]
     Indication: ANKYLOSING SPONDYLITIS
     Dates: start: 20120413
  4. LOVASTATIN [Concomitant]
     Indication: BLOOD CHOLESTEROL
     Dosage: 40 MG QHS
  5. INSULIN [Concomitant]
     Indication: TYPE 2 DIABETES MELLITUS
     Dosage: 24 UNITS QAM
  6. MONOPRIL [Concomitant]
     Indication: BLOOD PRESSURE
  7. XANAX [Suspect]
     Indication: PRODUCT USED FOR UNKNOWN INDICATION
  8. SYNTHROID [Concomitant]
     Indication: PRODUCT USED FOR UNKNOWN INDICATION
     Dosage: QAM
  9. METOPROLOL [Concomitant]
     Indication: BLOOD PRESSURE
  10. TRAMADOL HYDROCHLORIDE [Suspect]
     Indication: PRODUCT USED FOR UNKNOWN INDICATION
  11. REMERON [Concomitant]
     Indication: INSOMNIA
     Dosage: 15MG AT BEDTIME

REACTIONS (5)
  - UNEVALUABLE EVENT [None]
  - UPPER RESPIRATORY TRACT INFECTION [None]
  - FEELING ABNORMAL [None]
  - NASOPHARYNGITIS [None]
  - DYSARTHRIA [None]
